FAERS Safety Report 10788718 (Version 1)
Quarter: 2015Q1

REPORT INFORMATION
  Report Type: Spontaneous
  Country: US (occurrence: None)
  Receive Date: 20150211
  Receipt Date: 20150211
  Transmission Date: 20150721
  Serious: Yes (Life-Threatening, Hospitalization)
  Sender: FDA-Public Use
  Company Number: None

PATIENT
  Age: 45 Year
  Sex: Male
  Weight: 83.9 kg

DRUGS (1)
  1. LISINOPRIL. [Suspect]
     Active Substance: LISINOPRIL
     Route: 048
     Dates: start: 20150115, end: 20150115

REACTIONS (6)
  - Tachycardia [None]
  - Hypertension [None]
  - Respiratory failure [None]
  - Tachypnoea [None]
  - Angioedema [None]
  - Agitation [None]

NARRATIVE: CASE EVENT DATE: 20150115
